FAERS Safety Report 19277557 (Version 1)
Quarter: 2021Q2

REPORT INFORMATION
  Report Type: Spontaneous
  Country: US (occurrence: US)
  Receive Date: 20210520
  Receipt Date: 20210520
  Transmission Date: 20210717
  Serious: Yes (Other)
  Sender: FDA-Public Use
  Company Number: US-AMGEN-USASP2021072025

PATIENT
  Age: 80 Year
  Sex: Male

DRUGS (9)
  1. NPLATE [Suspect]
     Active Substance: ROMIPLOSTIM
     Dosage: 250 MICROGRAM
     Route: 065
     Dates: start: 20210412, end: 202104
  2. DANAZOL. [Concomitant]
     Active Substance: DANAZOL
     Route: 042
  3. COVID?19 VACCINE NOS. [Concomitant]
     Active Substance: COVID-19 VACCINE NOS
  4. NPLATE [Suspect]
     Active Substance: ROMIPLOSTIM
     Dosage: 200 MICROGRAM
     Route: 065
     Dates: start: 20210329, end: 20210405
  5. NPLATE [Suspect]
     Active Substance: ROMIPLOSTIM
     Dosage: 500 MICROGRAM
     Route: 065
     Dates: start: 20210419, end: 20210429
  6. IMMUNOGLOBULIN I.V [Concomitant]
     Active Substance: HUMAN IMMUNOGLOBULIN G
  7. NPLATE [Suspect]
     Active Substance: ROMIPLOSTIM
     Dosage: 100 MICROGRAM
     Route: 065
     Dates: start: 20210118, end: 20210208
  8. NPLATE [Suspect]
     Active Substance: ROMIPLOSTIM
     Indication: IMMUNE THROMBOCYTOPENIA
     Dosage: 500 MICROGRAM
     Route: 065
     Dates: start: 20201103
  9. NPLATE [Suspect]
     Active Substance: ROMIPLOSTIM
     Dosage: 500 MICROGRAM
     Route: 065
     Dates: start: 20210503

REACTIONS (1)
  - Platelet count decreased [Unknown]

NARRATIVE: CASE EVENT DATE: 2021
